FAERS Safety Report 4802019-5 (Version None)
Quarter: 2005Q4

REPORT INFORMATION
  Report Type: 
  Country: None (occurrence: None)
  Receive Date: 20051012
  Receipt Date: 20051003
  Transmission Date: 20060501
  Serious: Yes (Other)
  Sender: FDA-Public Use
  Company Number: 218317

PATIENT
  Age: 15 Year
  Sex: Female
  Weight: 66.4 kg

DRUGS (10)
  1. XOLAIR [Suspect]
     Indication: ASTHMA
     Dosage: 150 MG, 1/MONTH, SUBCUTANEOUS
     Route: 058
     Dates: start: 20050628
  2. SINGULAIR [Concomitant]
  3. ZOLOFT [Concomitant]
  4. ALBUTEROL INHALER (ALBUTEROL SULFATE, ALBUTEROL) [Concomitant]
  5. TOPAMAX [Concomitant]
  6. FLONASE [Concomitant]
  7. ADVAIR DISKUS 100/50 [Concomitant]
  8. IBUPROFEN [Concomitant]
  9. FIORICET (ACETAMINOPHEN, BUTALBITAL, CAFFEINE) [Concomitant]
  10. ZADITOR (KETOTIFEN FUMARATE) [Concomitant]

REACTIONS (2)
  - GRAND MAL CONVULSION [None]
  - PETIT MAL EPILEPSY [None]
